FAERS Safety Report 8171251-8 (Version None)
Quarter: 2012Q1

REPORT INFORMATION
  Report Type: 
  Country: None (occurrence: None)
  Receive Date: 20120113
  Receipt Date: 20111128
  Transmission Date: 20120608
  Serious: No
  Sender: FDA-Public Use
  Company Number: 2011S1000112

PATIENT
  Sex: Male

DRUGS (6)
  1. PREDNISONE TAB [Concomitant]
  2. CELLCEPT [Concomitant]
  3. HYDROCORTISONE [Concomitant]
  4. KRYSTEXXA [Suspect]
     Indication: GOUT
     Dosage: 8 MG;BIW;
     Dates: start: 20110101
  5. CLARITIN /00917501/ [Concomitant]
  6. PROGRAF [Concomitant]

REACTIONS (4)
  - DEPRESSION [None]
  - AFFECT LABILITY [None]
  - DIARRHOEA [None]
  - PRURITUS [None]
